FAERS Safety Report 21966008 (Version 3)
Quarter: 2023Q1

REPORT INFORMATION
  Report Type: Report from Study
  Country: DE (occurrence: DE)
  Receive Date: 20230208
  Receipt Date: 20230307
  Transmission Date: 20230418
  Serious: Yes (Other)
  Sender: FDA-Public Use
  Company Number: DE-002147023-NVSC2023DE025187

PATIENT
  Age: 57 Year
  Sex: Female

DRUGS (2)
  1. MAYZENT [Suspect]
     Active Substance: SIPONIMOD
     Indication: Secondary progressive multiple sclerosis
     Dosage: 2 MG, QD (DAILY)
     Route: 048
     Dates: start: 20230120
  2. IBUPROFEN [Concomitant]
     Active Substance: IBUPROFEN
     Indication: Product used for unknown indication
     Dosage: 400 MG, AS NEEDED
     Route: 048

REACTIONS (8)
  - Blood pressure fluctuation [Recovered/Resolved]
  - Feeling abnormal [Unknown]
  - Oedema [Not Recovered/Not Resolved]
  - Stress [Unknown]
  - Oedema peripheral [Recovering/Resolving]
  - Lymphopenia [Not Recovered/Not Resolved]
  - Joint swelling [Unknown]
  - Peripheral swelling [Unknown]

NARRATIVE: CASE EVENT DATE: 20230125
